FAERS Safety Report 8378891-1 (Version None)
Quarter: 2012Q2

REPORT INFORMATION
  Report Type: 
  Country: None (occurrence: None)
  Receive Date: 20120522
  Receipt Date: 20120522
  Transmission Date: 20120825
  Serious: Yes (Other)
  Sender: FDA-Public Use
  Company Number: None

PATIENT
  Age: 72 Year
  Sex: Female
  Weight: 60 kg

DRUGS (1)
  1. C+C MAKEUP DISSOLVING CLEANSER [Suspect]
     Dosage: TOPICAL
     Route: 061

REACTIONS (6)
  - EYE PAIN [None]
  - SCREAMING [None]
  - EYE IRRITATION [None]
  - EYELID FUNCTION DISORDER [None]
  - VISION BLURRED [None]
  - CHEMICAL EYE INJURY [None]
